FAERS Safety Report 9371849 (Version 2)
Quarter: 2013Q2

REPORT INFORMATION
  Report Type: Spontaneous
  Country: ES (occurrence: None)
  Receive Date: 20130619
  Receipt Date: 20130626
  Transmission Date: 20140414
  Serious: Yes (Life-Threatening)
  Sender: FDA-Public Use
  Company Number: 2013036529

PATIENT
  Age: 5 Year
  Sex: Female

DRUGS (5)
  1. PRIVIGEN [Suspect]
     Indication: DIARRHOEA
     Dosage: 7.5G 1X/4 WEEKS, 4.8 ML/KG/H, NI,NI
     Route: 042
     Dates: start: 20130404
  2. PRIVIGEN [Suspect]
     Indication: HYPOGAMMAGLOBULINAEMIA
     Dosage: 7.5G 1X/4 WEEKS, 4.8 ML/KG/H, NI,NI
     Route: 042
     Dates: start: 20130404
  3. SOLUTIONS FOR PARENTERAL NUTRITION (SOLUTIONS FOR PARENTERAL NUTRITION) [Concomitant]
  4. PARACETAMOL (PARACETAMOL) [Concomitant]
  5. DIPHENYDRAMINE (DIPHENHYDRAMINE) [Concomitant]

REACTIONS (1)
  - Anaphylactic shock [None]
